FAERS Safety Report 7340240-5 (Version None)
Quarter: 2011Q1

REPORT INFORMATION
  Report Type: 
  Country: None (occurrence: None)
  Receive Date: 20110309
  Receipt Date: 20110223
  Transmission Date: 20110831
  Serious: Yes (Other)
  Sender: FDA-Public Use
  Company Number: PHHY2010JP60373

PATIENT
  Sex: Male
  Weight: 104 kg

DRUGS (5)
  1. CO-DIOVAN [Suspect]
     Indication: HYPERTENSION
     Dosage: 1 DF DAILY
     Route: 048
     Dates: start: 20091116
  2. NORVASC [Concomitant]
     Dosage: 75 MG, UNK
     Route: 048
     Dates: start: 20091027
  3. LOCHOL [Concomitant]
     Dosage: 20 MG, UNK
     Route: 048
     Dates: start: 20100313
  4. MIGLITOL [Concomitant]
     Dosage: 150 MG, UNK
     Route: 048
     Dates: start: 20100827
  5. ARTIST [Concomitant]
     Dosage: 10 MG, UNK
     Route: 048
     Dates: start: 20091214

REACTIONS (3)
  - DIABETES MELLITUS [None]
  - HYPERCHOLESTEROLAEMIA [None]
  - BLOOD PRESSURE INCREASED [None]
